FAERS Safety Report 8218075-0 (Version None)
Quarter: 2012Q1

REPORT INFORMATION
  Report Type: 
  Country: None (occurrence: None)
  Receive Date: 20120319
  Receipt Date: 20120312
  Transmission Date: 20120608
  Serious: Yes (Other)
  Sender: FDA-Public Use
  Company Number: DZ-PFIZER INC-2012069162

PATIENT
  Age: 76 Year
  Sex: Male

DRUGS (8)
  1. IRBESARTAN [Concomitant]
     Dosage: UNK
  2. AMARYL [Concomitant]
     Dosage: UNK
  3. ASPEGIC 1000 [Concomitant]
     Dosage: UNK
  4. ATENOR [Concomitant]
     Dosage: UNK
  5. CORVASAL [Concomitant]
     Dosage: UNK
  6. ATORVASTATIN [Suspect]
     Indication: PROPHYLAXIS
     Dosage: 80 MG, 1X/DAY
     Route: 048
     Dates: end: 20120301
  7. ISOSORBIDE DINITRATE [Concomitant]
     Dosage: UNK
  8. GLUCOPHAGE [Concomitant]
     Dosage: UNK

REACTIONS (4)
  - ABDOMINAL PAIN [None]
  - TROPONIN [None]
  - TINNITUS [None]
  - VERTIGO [None]
